FAERS Safety Report 22925019 (Version 2)
Quarter: 2023Q4

REPORT INFORMATION
  Report Type: Report from Study
  Country: CA (occurrence: CA)
  Receive Date: 20230908
  Receipt Date: 20231122
  Transmission Date: 20240110
  Serious: Yes (Hospitalization)
  Sender: FDA-Public Use
  Company Number: CA-JNJFOC-20230444086

PATIENT
  Age: 73 Year
  Sex: Female

DRUGS (16)
  1. MACITENTAN [Suspect]
     Active Substance: MACITENTAN
     Indication: Pulmonary hypertension
     Route: 048
     Dates: start: 20201002
  2. ADCIRCA [Concomitant]
     Active Substance: TADALAFIL
  3. METOPROLOL [Concomitant]
     Active Substance: METOPROLOL
  4. DOXYCYCLINE [Concomitant]
     Active Substance: DOXYCYCLINE
  5. FUROSEMIDE [Concomitant]
     Active Substance: FUROSEMIDE
  6. METFORMIN [Concomitant]
     Active Substance: METFORMIN HYDROCHLORIDE
  7. SIMVASTATIN [Concomitant]
     Active Substance: SIMVASTATIN
  8. ASPIRIN [Concomitant]
     Active Substance: ASPIRIN
  9. HYDROCHLOROTHIAZIDE [Concomitant]
     Active Substance: HYDROCHLOROTHIAZIDE
  10. RAMIPRIL [Concomitant]
     Active Substance: RAMIPRIL
  11. SPIRIVA [Concomitant]
     Active Substance: TIOTROPIUM BROMIDE MONOHYDRATE
  12. BUDESONIDE\FORMOTEROL FUMARATE [Concomitant]
     Active Substance: BUDESONIDE\FORMOTEROL FUMARATE
  13. ALBUTEROL [Concomitant]
     Active Substance: ALBUTEROL
  14. LACTOBACILLUS ACIDOPHILUS [Concomitant]
     Active Substance: LACTOBACILLUS ACIDOPHILUS
  15. CALCIUM [Concomitant]
     Active Substance: CALCIUM
  16. ERGOCALCIFEROL [Concomitant]
     Active Substance: ERGOCALCIFEROL

REACTIONS (1)
  - Hospitalisation [Unknown]

NARRATIVE: CASE EVENT DATE: 20230418
